FAERS Safety Report 13131166 (Version 3)
Quarter: 2017Q1

REPORT INFORMATION
  Report Type: Spontaneous
  Country: SE (occurrence: SE)
  Receive Date: 20170119
  Receipt Date: 20170327
  Transmission Date: 20170428
  Serious: Yes (Other)
  Sender: FDA-Public Use
  Company Number: SE-PFIZER INC-2017023194

PATIENT
  Age: 52 Year
  Sex: Male

DRUGS (1)
  1. VENLAFAXINE HCL [Suspect]
     Active Substance: VENLAFAXINE HYDROCHLORIDE
     Dosage: UNK
     Dates: start: 2009, end: 2010

REACTIONS (6)
  - Nausea [Unknown]
  - Suicidal behaviour [Unknown]
  - Listless [Unknown]
  - Panic attack [Unknown]
  - Headache [Unknown]
  - Drug withdrawal syndrome [Unknown]
